FAERS Safety Report 14354566 (Version 1)
Quarter: 2020Q3

REPORT INFORMATION
  Report Type: Spontaneous
  Country: DE (occurrence: DE)
  Receive Date: 20180105
  Receipt Date: 20180105
  Transmission Date: 20201105
  Serious: Yes (Other)
  Sender: FDA-Public Use
  Company Number: DE-AUROBINDO-AUR-APL-2018-000216

PATIENT
  Age: 68 Year
  Sex: Female

DRUGS (3)
  1. IBANDRONIC ACID. [Suspect]
     Active Substance: IBANDRONIC ACID
     Indication: BREAST CANCER METASTATIC
     Dosage: UNK
     Route: 042
  2. PACLITAXEL. [Concomitant]
     Active Substance: PACLITAXEL
     Indication: PRODUCT USED FOR UNKNOWN INDICATION
     Dosage: UNK
  3. BEVACIZUMAB. [Concomitant]
     Active Substance: BEVACIZUMAB
     Indication: PRODUCT USED FOR UNKNOWN INDICATION
     Dosage: UNK

REACTIONS (2)
  - Product use in unapproved indication [Unknown]
  - Osteonecrosis of jaw [Unknown]
